FAERS Safety Report 18987376 (Version 1)
Quarter: 2021Q1

REPORT INFORMATION
  Report Type: Report from Study
  Country: JP (occurrence: JP)
  Receive Date: 20210309
  Receipt Date: 20210309
  Transmission Date: 20210420
  Serious: Yes (Other)
  Sender: FDA-Public Use
  Company Number: JP-FERRINGPH-2021FE01394

PATIENT
  Sex: Male

DRUGS (2)
  1. DEGARELIX [Suspect]
     Active Substance: DEGARELIX
     Indication: NEOADJUVANT THERAPY
     Dosage: UNK
     Route: 065
     Dates: start: 201806
  2. ESTRAMUSTINE PHOSPHATE SODIUM [Suspect]
     Active Substance: ESTRAMUSTINE PHOSPHATE SODIUM
     Indication: NEOADJUVANT THERAPY
     Dosage: 280 MG, DAILY
     Route: 065
     Dates: start: 201806

REACTIONS (1)
  - Cardiac failure [Unknown]
